FAERS Safety Report 5857167-8 (Version None)
Quarter: 2008Q3

REPORT INFORMATION
  Report Type: 
  Country: None (occurrence: None)
  Receive Date: 20080825
  Receipt Date: 20080820
  Transmission Date: 20090109
  Serious: Yes (Other)
  Sender: FDA-Public Use
  Company Number: PHHY2008DE18629

PATIENT
  Sex: Female

DRUGS (2)
  1. RASILEZ [Suspect]
     Dosage: 150 MG/DAY
     Dates: start: 20080701
  2. EXFORGE [Suspect]
     Dosage: 1 DF, BID
     Dates: start: 20080701

REACTIONS (1)
  - LEUKOCYTOCLASTIC VASCULITIS [None]
